FAERS Safety Report 5048322-8 (Version None)
Quarter: 2006Q3

REPORT INFORMATION
  Report Type: 
  Country: None (occurrence: None)
  Receive Date: 20060711
  Receipt Date: 20060628
  Transmission Date: 20061208
  Serious: Yes (Hospitalization)
  Sender: FDA-Public Use
  Company Number: US-BOEHRINGER INGELHEIM PHARMACEUTICALS, INC.-2006-DE-03324GD

PATIENT
  Age: 73 Year
  Sex: Male

DRUGS (5)
  1. CLONIDINE [Suspect]
     Indication: HYPERTENSION
  2. HYDROCHLOROTHIAZIDE [Suspect]
     Indication: HYPERTENSION
  3. ATENOLOL [Suspect]
     Indication: HYPERTENSION
  4. LOSARTAN [Suspect]
     Indication: HYPERTENSION
  5. POTASSIUM SUPPLEMENTS [Suspect]
     Indication: HYPERTENSION

REACTIONS (3)
  - CARDIAC FAILURE CONGESTIVE [None]
  - HYPERTENSIVE CRISIS [None]
  - RENAL FAILURE [None]
